FAERS Safety Report 8572290-5 (Version None)
Quarter: 2012Q3

REPORT INFORMATION
  Report Type: 
  Country: None (occurrence: None)
  Receive Date: 20120806
  Receipt Date: 20120801
  Transmission Date: 20120928
  Serious: Yes (Hospitalization, Other)
  Sender: FDA-Public Use
  Company Number: US-AMGEN-USASP2012048178

PATIENT
  Age: 55 Year
  Sex: Male

DRUGS (2)
  1. ENBREL [Suspect]
     Indication: ANKYLOSING SPONDYLITIS
     Dosage: 50 MG, 2 TIMES/WK
     Dates: start: 20060731
  2. ENBREL [Suspect]
     Indication: PSORIASIS

REACTIONS (4)
  - MULTI-ORGAN FAILURE [None]
  - PANCREATITIS ACUTE [None]
  - RASH MACULAR [None]
  - PANCREATIC NECROSIS [None]
